FAERS Safety Report 25260204 (Version 1)
Quarter: 2025Q2

REPORT INFORMATION
  Report Type: Spontaneous
  Country: CN (occurrence: CN)
  Receive Date: 20250501
  Receipt Date: 20250501
  Transmission Date: 20250717
  Serious: Yes (Other)
  Sender: ORGANON
  Company Number: CN-ORGANON-O2504CHN002763

PATIENT
  Age: 48 Year
  Sex: Female
  Weight: 55 kg

DRUGS (3)
  1. DIPROSPAN [Suspect]
     Active Substance: BETAMETHASONE DIPROPIONATE\BETAMETHASONE SODIUM PHOSPHATE
     Indication: Joint adhesion
     Dosage: 5MG, QD,INTRA-ARTICULAR INJECTION
     Route: 014
     Dates: start: 20250331, end: 20250331
  2. LIDOCAINE HYDROCHLORIDE [Suspect]
     Active Substance: LIDOCAINE HYDROCHLORIDE
     Indication: Local anaesthesia
     Dosage: 2ML,QD, LOCAL INFILTRATION ANESTHESIA|
     Dates: start: 20250331, end: 20250331
  3. STERILE WATER [Concomitant]
     Active Substance: WATER
     Indication: Joint adhesion
     Dosage: 2ML, QD, INTRA-ARTICULAR INJECTION
     Route: 014
     Dates: start: 20250331, end: 20250331

REACTIONS (4)
  - Rash [Recovering/Resolving]
  - Blood pressure decreased [Recovering/Resolving]
  - Anaphylactic shock [Recovering/Resolving]
  - Incorrect route of product administration [Unknown]

NARRATIVE: CASE EVENT DATE: 20250331
